FAERS Safety Report 13471785 (Version 1)
Quarter: 2017Q2

REPORT INFORMATION
  Report Type: Spontaneous
  Country: US (occurrence: US)
  Receive Date: 20170423
  Receipt Date: 20170423
  Transmission Date: 20170830
  Serious: Yes (Hospitalization)
  Sender: FDA-Public Use
  Company Number: None

PATIENT
  Age: 72 Year
  Sex: Male

DRUGS (1)
  1. APIXABAN [Suspect]
     Active Substance: APIXABAN
     Indication: THROMBECTOMY
     Route: 048
     Dates: start: 20170316, end: 20170321

REACTIONS (5)
  - Gastric ulcer [None]
  - Anaemia [None]
  - Gastrointestinal haemorrhage [None]
  - Gastritis [None]
  - Anorectal ulcer [None]

NARRATIVE: CASE EVENT DATE: 20170321
